FAERS Safety Report 5075283-8 (Version None)
Quarter: 2006Q3

REPORT INFORMATION
  Report Type: 
  Country: None (occurrence: None)
  Receive Date: 20060803
  Receipt Date: 20060803
  Transmission Date: 20061208
  Serious: Yes (Hospitalization)
  Sender: FDA-Public Use
  Company Number: None

PATIENT
  Age: 57 Year
  Sex: Male
  Weight: 116.5744 kg

DRUGS (7)
  1. AVASTIN [Suspect]
     Indication: BILE DUCT CANCER
     Dosage: 10 MG/KG IV DAYS 1, 15
     Route: 042
     Dates: start: 20060606, end: 20060718
  2. GEMCITABINE [Suspect]
     Indication: BILE DUCT CANCER
     Dosage: IV DAYS 1, 15
     Route: 042
     Dates: start: 20060606, end: 20060718
  3. CAZAAR [Concomitant]
  4. COREG [Concomitant]
  5. DIGOXIN [Concomitant]
  6. GLYURIDE [Concomitant]
  7. MOTRIN [Concomitant]

REACTIONS (5)
  - DUODENAL STENOSIS [None]
  - INTESTINAL OBSTRUCTION [None]
  - NAUSEA [None]
  - OBSTRUCTION GASTRIC [None]
  - VOMITING [None]
